FAERS Safety Report 25092542 (Version 3)
Quarter: 2025Q3

REPORT INFORMATION
  Report Type: Spontaneous
  Country: US (occurrence: US)
  Receive Date: 20250319
  Receipt Date: 20250810
  Transmission Date: 20251021
  Serious: No
  Sender: ALEXION PHARMACEUTICALS
  Company Number: US-AstraZeneca-CH-00826054AP

PATIENT
  Sex: Female

DRUGS (1)
  1. SYMBICORT [Suspect]
     Active Substance: BUDESONIDE\FORMOTEROL FUMARATE DIHYDRATE
     Dosage: 160 MILLIGRAM, BID
     Route: 065

REACTIONS (6)
  - Dyspnoea [Unknown]
  - Photophobia [Unknown]
  - Off label use [Unknown]
  - Incorrect dose administered [Unknown]
  - Insurance issue [Unknown]
  - Device delivery system issue [Unknown]
